FAERS Safety Report 9087519 (Version 1)
Quarter: 2013Q1

REPORT INFORMATION
  Report Type: Report from Study
  Country: US (occurrence: US)
  Receive Date: 20130201
  Receipt Date: 20130201
  Transmission Date: 20140127
  Serious: No
  Sender: FDA-Public Use
  Company Number: US-ABBOTT-12P-163-1025852-00

PATIENT
  Sex: Male
  Weight: 115.77 kg

DRUGS (3)
  1. HUMIRA [Suspect]
     Indication: PSORIATIC ARTHROPATHY
     Dates: start: 201204, end: 201206
  2. HUMIRA [Suspect]
     Dates: start: 201206
  3. UNKNOWN TOPICAL STEROID CREAMS [Concomitant]
     Indication: PRODUCT USED FOR UNKNOWN INDICATION
     Route: 061

REACTIONS (4)
  - Throat tightness [Not Recovered/Not Resolved]
  - Drug ineffective [Unknown]
  - Obstructive airways disorder [Not Recovered/Not Resolved]
  - Pharyngeal oedema [Not Recovered/Not Resolved]
